FAERS Safety Report 6785698-5 (Version None)
Quarter: 2010Q2

REPORT INFORMATION
  Report Type: 
  Country: None (occurrence: None)
  Receive Date: 20100621
  Receipt Date: 20100621
  Transmission Date: 20101027
  Serious: Yes (Hospitalization)
  Sender: FDA-Public Use
  Company Number: None

PATIENT
  Age: 71 Year
  Sex: Male
  Weight: 90.7194 kg

DRUGS (2)
  1. TOPROL-XL [Suspect]
     Indication: CARDIOMYOPATHY
     Dosage: 100 MG DAILY PO
     Route: 048
     Dates: start: 19990924, end: 20100618
  2. TOPROL-XL [Suspect]
     Indication: HYPERTENSION
     Dosage: 100 MG DAILY PO
     Route: 048
     Dates: start: 19990924, end: 20100618

REACTIONS (6)
  - ASTHENIA [None]
  - DIZZINESS [None]
  - DRUG DISPENSING ERROR [None]
  - DRUG LABEL CONFUSION [None]
  - MEDICATION ERROR [None]
  - PRESYNCOPE [None]
